FAERS Safety Report 8401304-8 (Version None)
Quarter: 2012Q2

REPORT INFORMATION
  Report Type: 
  Country: None (occurrence: None)
  Receive Date: 20120530
  Receipt Date: 20120530
  Transmission Date: 20120825
  Serious: Yes (Other)
  Sender: FDA-Public Use
  Company Number: None

PATIENT
  Age: 65 Year
  Sex: Male

DRUGS (1)
  1. CYNRYZE - TWO (2) VIOLES EVERY TWICE A WEEK [Suspect]
     Indication: HEREDITARY ANGIOEDEMA
     Dosage: TWO (2) VIOLES TWICE A WEEK IT IS ALL IV (INTREVENIOUS INJECTION
     Route: 042

REACTIONS (1)
  - DIARRHOEA [None]
